FAERS Safety Report 15477821 (Version 1)
Quarter: 2018Q4

REPORT INFORMATION
  Report Type: Spontaneous
  Country: US (occurrence: US)
  Receive Date: 20181009
  Receipt Date: 20181009
  Transmission Date: 20190205
  Serious: Yes (Hospitalization)
  Sender: FDA-Public Use
  Company Number: US-HORIZON-RAV-0167-2018

PATIENT
  Age: 7 Year
  Sex: Male

DRUGS (4)
  1. SODIUM BENZOATE [Concomitant]
     Active Substance: SODIUM BENZOATE
  2. DIAZOXIDE [Concomitant]
     Active Substance: DIAZOXIDE
  3. VITAMIN D3 [Concomitant]
     Active Substance: CHOLECALCIFEROL
     Dosage: 100000/G
  4. RAVICTI [Suspect]
     Active Substance: GLYCEROL PHENYLBUTYRATE
     Indication: UREA CYCLE DISORDER
     Dosage: 3 ML BY MOUTH TID WITH MEALS
     Route: 048
     Dates: start: 20161006

REACTIONS (1)
  - Ammonia increased [Unknown]
